FAERS Safety Report 4445264-3 (Version None)
Quarter: 2004Q3

REPORT INFORMATION
  Report Type: 
  Country: None (occurrence: None)
  Receive Date: 20040823
  Receipt Date: 20031020
  Transmission Date: 20050211
  Serious: Yes (Other)
  Sender: FDA-Public Use
  Company Number: CIP03002903

PATIENT
  Age: 35 Year
  Sex: Female

DRUGS (2)
  1. ASACOL [Suspect]
     Indication: COLITIS ULCERATIVE
     Dosage: 4800 MG, DAILY, ORAL
     Route: 048
     Dates: start: 20021001, end: 20030901
  2. CANASA (MESALAZINE) SUPPOSITORY [Concomitant]

REACTIONS (3)
  - COUGH [None]
  - EOSINOPHILIC PNEUMONIA [None]
  - RESPIRATORY DISORDER [None]
